FAERS Safety Report 6330793-8 (Version None)
Quarter: 2009Q3

REPORT INFORMATION
  Report Type: 
  Country: None (occurrence: None)
  Receive Date: 20090827
  Receipt Date: 20090820
  Transmission Date: 20100115
  Serious: Yes (Other)
  Sender: FDA-Public Use
  Company Number: PHHY2009JP27963

PATIENT
  Sex: Female

DRUGS (3)
  1. ZOLEDRONATE T29581+ [Suspect]
     Indication: METASTASES TO BONE
     Dosage: 4 MG EVERY 4 WEEKS
     Route: 042
     Dates: start: 20071109, end: 20080229
  2. ARIMIDEX [Concomitant]
     Indication: BREAST CANCER
     Dosage: 1 MG, UNK
     Route: 048
     Dates: start: 20070522, end: 20081210
  3. METHYCOBAL [Concomitant]
     Dosage: 1.5 MG, UNK
     Route: 048
     Dates: start: 20070522, end: 20071120

REACTIONS (6)
  - GINGIVAL ERYTHEMA [None]
  - HYPOCALCAEMIA [None]
  - OSTEOMYELITIS [None]
  - PAIN IN JAW [None]
  - RENAL FAILURE ACUTE [None]
  - SWELLING [None]
